FAERS Safety Report 19119231 (Version 3)
Quarter: 2021Q2

REPORT INFORMATION
  Report Type: Report from Study
  Country: US (occurrence: US)
  Receive Date: 20210411
  Receipt Date: 20210629
  Transmission Date: 20210717
  Serious: No
  Sender: FDA-Public Use
  Company Number: NVSC2021US077732

PATIENT

DRUGS (1)
  1. KESIMPTA [Suspect]
     Active Substance: OFATUMUMAB
     Indication: MULTIPLE SCLEROSIS
     Dosage: UNK
     Route: 065

REACTIONS (8)
  - Diarrhoea [Unknown]
  - Constipation [Unknown]
  - Sexual dysfunction [Unknown]
  - Feeling jittery [Unknown]
  - Photosensitivity reaction [Recovered/Resolved]
  - Headache [Recovered/Resolved]
  - Anxiety [Unknown]
  - Headache [Unknown]
